FAERS Safety Report 23597687 (Version 1)
Quarter: 2024Q1

REPORT INFORMATION
  Report Type: Spontaneous
  Country: US (occurrence: US)
  Receive Date: 20240305
  Receipt Date: 20240305
  Transmission Date: 20240410
  Serious: Yes (Hospitalization)
  Sender: FDA-Public Use
  Company Number: US-MYLANLABS-2024M1020463

PATIENT
  Age: 43 Year
  Sex: Male

DRUGS (3)
  1. NICARDIPINE [Suspect]
     Active Substance: NICARDIPINE
     Indication: Hypertensive crisis
     Dosage: UNK,  INFUSION
     Route: 065
  2. DOXAZOSIN [Suspect]
     Active Substance: DOXAZOSIN MESYLATE
     Indication: Hypertensive crisis
     Dosage: UNK
     Route: 065
  3. PHENTOLAMINE [Concomitant]
     Active Substance: PHENTOLAMINE
     Indication: Hypertensive crisis
     Dosage: UNK
     Route: 065

REACTIONS (1)
  - Drug ineffective [Unknown]
